FAERS Safety Report 5551125-9 (Version None)
Quarter: 2007Q4

REPORT INFORMATION
  Report Type: 
  Country: None (occurrence: None)
  Receive Date: 20071212
  Receipt Date: 20071128
  Transmission Date: 20080405
  Serious: Yes (Hospitalization)
  Sender: FDA-Public Use
  Company Number: B0498441A

PATIENT
  Age: 46 Year
  Sex: Female

DRUGS (22)
  1. AUGMENTIN '125' [Suspect]
     Indication: PLEURAL EFFUSION
     Dates: start: 20070215, end: 20070329
  2. RIFADIN [Suspect]
     Indication: TUBERCULOSIS
     Dosage: 300MG PER DAY
     Route: 048
     Dates: start: 20060915, end: 20070424
  3. PARACETAMOL [Suspect]
     Route: 048
     Dates: end: 20070424
  4. LOXAPAC [Suspect]
     Route: 048
     Dates: end: 20070424
  5. RIMIFON [Concomitant]
     Indication: TUBERCULOSIS
     Dosage: 150MG PER DAY
     Route: 048
     Dates: start: 20060919, end: 20070801
  6. DIALYSIS [Concomitant]
     Dates: start: 20070109
  7. PIRILENE [Concomitant]
     Indication: TUBERCULOSIS
     Dosage: 1.5G ALTERNATE DAYS
     Route: 048
     Dates: start: 20060915, end: 20070801
  8. DEXAMBUTOL [Concomitant]
     Indication: TUBERCULOSIS
     Dosage: 1.5G ALTERNATE DAYS
     Route: 048
     Dates: start: 20060915, end: 20070801
  9. LOXEN [Concomitant]
     Dosage: 50MG THREE TIMES PER DAY
     Route: 065
  10. HYPERIUM [Concomitant]
     Route: 065
  11. LASIX [Concomitant]
     Dosage: 500MG TWICE PER DAY
     Route: 065
  12. TENORMIN [Concomitant]
     Dosage: 50MG PER DAY
     Route: 065
  13. MEDIATENSYL [Concomitant]
     Route: 065
  14. TAHOR [Concomitant]
     Dosage: 10MG PER DAY
     Route: 065
  15. INEXIUM [Concomitant]
     Dosage: 20MG PER DAY
     Route: 065
  16. DEDROGYL [Concomitant]
     Dosage: 5DROP SEE DOSAGE TEXT
     Route: 048
  17. UN ALPHA [Concomitant]
     Dosage: .25MG SEE DOSAGE TEXT
     Route: 065
  18. XANAX [Concomitant]
     Dosage: .25MG PER DAY
     Route: 065
  19. ERYTHROMYCIN [Concomitant]
     Dosage: 250MG THREE TIMES PER DAY
     Route: 065
  20. LANTUS [Concomitant]
     Dosage: 26IU PER DAY
     Route: 065
  21. OFLOCET [Concomitant]
     Indication: PLEURAL EFFUSION
     Route: 065
     Dates: start: 20070215
  22. AMIKLIN [Concomitant]
     Dosage: 7.5MG PER DAY
     Route: 065
     Dates: start: 20070401

REACTIONS (11)
  - BLOOD ALKALINE PHOSPHATASE INCREASED [None]
  - CHOLANGITIS [None]
  - CHOLESTASIS [None]
  - HEPATIC CIRRHOSIS [None]
  - HEPATITIS CHOLESTATIC [None]
  - HEPATOSPLENOMEGALY [None]
  - INFLAMMATION [None]
  - IRON OVERLOAD [None]
  - OCULAR ICTERUS [None]
  - PRURITUS [None]
  - SKIN LESION [None]
